FAERS Safety Report 9112175 (Version 1)
Quarter: 2013Q1

REPORT INFORMATION
  Report Type: Spontaneous
  Country: US (occurrence: US)
  Receive Date: 20130219
  Receipt Date: 20130219
  Transmission Date: 20140127
  Serious: No
  Sender: FDA-Public Use
  Company Number: US-BRISTOL-MYERS SQUIBB COMPANY-17014937

PATIENT
  Age: 66 Year
  Sex: Female
  Weight: 98.86 kg

DRUGS (3)
  1. ABATACEPT SUBQ INJECTION 125MG/ML [Suspect]
     Indication: RHEUMATOID ARTHRITIS
     Dosage: RECENT DOSE 1OCT12
     Route: 058
  2. ISOSORBIDE MONONITRATE [Suspect]
     Dosage: ISOSORBIDE MN ER?ABOUT THREE WEEKS AGO
  3. PLAVIX [Suspect]
     Dosage: ABOUT THREE WEEKS AGO

REACTIONS (2)
  - Headache [Unknown]
  - Vision blurred [Recovered/Resolved]
